FAERS Safety Report 24993135 (Version 1)
Quarter: 2025Q1

REPORT INFORMATION
  Report Type: Spontaneous
  Country: CA (occurrence: CA)
  Receive Date: 20250221
  Receipt Date: 20250221
  Transmission Date: 20250409
  Serious: Yes (Other)
  Sender: ROCHE
  Company Number: CA-002147023-NVSC2025CA023694

PATIENT
  Age: 53 Year
  Sex: Female

DRUGS (21)
  1. OMALIZUMAB [Suspect]
     Active Substance: OMALIZUMAB
     Indication: Chronic spontaneous urticaria
     Dosage: 300 MG, Q4W (1 EVERY 4 WEEKS)
     Route: 058
  2. OMALIZUMAB [Suspect]
     Active Substance: OMALIZUMAB
     Dosage: 300 MG, Q4W (1 EVERY 4 WEEKS)
     Route: 058
  3. OMALIZUMAB [Suspect]
     Active Substance: OMALIZUMAB
     Dosage: 300 MG, Q4W (1 EVERY 4 WEEKS)
     Route: 058
  4. OMALIZUMAB [Suspect]
     Active Substance: OMALIZUMAB
     Dosage: 300 MG, Q4W (1 EVERY 4 WEEKS)
     Route: 058
  5. OMALIZUMAB [Suspect]
     Active Substance: OMALIZUMAB
     Dosage: 300 MG, Q4W (1 EVERY 4 WEEKS)
     Route: 058
  6. OMALIZUMAB [Suspect]
     Active Substance: OMALIZUMAB
     Dosage: 300 MG, Q4W (1 EVERY 4 WEEKS)
     Route: 058
  7. OMALIZUMAB [Suspect]
     Active Substance: OMALIZUMAB
     Dosage: 300 MG, Q4W (1 EVERY 4 WEEKS)
     Route: 058
  8. OMALIZUMAB [Suspect]
     Active Substance: OMALIZUMAB
     Dosage: 300 MG, Q4W (1 EVERY 4 WEEKS)
     Route: 058
  9. EBASTINE [Suspect]
     Active Substance: EBASTINE
     Indication: Hypersensitivity
     Route: 065
  10. EBASTINE [Suspect]
     Active Substance: EBASTINE
     Indication: Chronic spontaneous urticaria
     Route: 065
  11. BUDESONIDE\FORMOTEROL FUMARATE [Concomitant]
     Active Substance: BUDESONIDE\FORMOTEROL FUMARATE
     Indication: Product used for unknown indication
     Route: 065
  12. CONCERTA [Concomitant]
     Active Substance: METHYLPHENIDATE HYDROCHLORIDE
     Indication: Product used for unknown indication
     Route: 065
  13. CROMOLYN SODIUM [Concomitant]
     Active Substance: CROMOLYN SODIUM
     Indication: Hypersensitivity
     Route: 065
  14. CROMOLYN SODIUM [Concomitant]
     Active Substance: CROMOLYN SODIUM
     Dosage: 2 DOSAGE FORM, QD
     Route: 050
  15. DESOXIMETASONE [Concomitant]
     Active Substance: DESOXIMETASONE
     Indication: Hypersensitivity
     Dosage: 1 DOSAGE FORM, QD
     Route: 065
  16. LEVOTHYROXINE [Concomitant]
     Active Substance: LEVOTHYROXINE
     Indication: Product used for unknown indication
     Route: 065
  17. ESTROGEL [Concomitant]
     Active Substance: ESTRADIOL
     Indication: Product used for unknown indication
     Route: 065
  18. LIOTHYRONINE SODIUM [Concomitant]
     Active Substance: LIOTHYRONINE SODIUM
     Indication: Product used for unknown indication
     Route: 065
  19. MAGNESIUM [Concomitant]
     Active Substance: MAGNESIUM
     Indication: Product used for unknown indication
     Route: 065
  20. NALTREXONE [Concomitant]
     Active Substance: NALTREXONE
     Indication: Product used for unknown indication
     Route: 065
  21. NALTREXONE [Concomitant]
     Active Substance: NALTREXONE
     Dosage: 1 DOSAGE FORM, QD
     Route: 065

REACTIONS (25)
  - Abdominal pain [Not Recovered/Not Resolved]
  - Anxiety [Not Recovered/Not Resolved]
  - Biliary colic [Not Recovered/Not Resolved]
  - Brain fog [Not Recovered/Not Resolved]
  - Chest discomfort [Not Recovered/Not Resolved]
  - Chronic spontaneous urticaria [Not Recovered/Not Resolved]
  - Condition aggravated [Not Recovered/Not Resolved]
  - Eye irritation [Not Recovered/Not Resolved]
  - Eyelids pruritus [Not Recovered/Not Resolved]
  - Fatigue [Not Recovered/Not Resolved]
  - Food allergy [Not Recovered/Not Resolved]
  - Generalised oedema [Not Recovered/Not Resolved]
  - Headache [Not Recovered/Not Resolved]
  - Influenza [Not Recovered/Not Resolved]
  - Malaise [Not Recovered/Not Resolved]
  - Memory impairment [Not Recovered/Not Resolved]
  - Pain [Not Recovered/Not Resolved]
  - Pancreatitis chronic [Not Recovered/Not Resolved]
  - Pruritus [Not Recovered/Not Resolved]
  - Skin swelling [Not Recovered/Not Resolved]
  - Swelling [Not Recovered/Not Resolved]
  - Temperature intolerance [Not Recovered/Not Resolved]
  - Throat irritation [Not Recovered/Not Resolved]
  - Wheezing [Not Recovered/Not Resolved]
  - Therapeutic product effect decreased [Not Recovered/Not Resolved]
